FAERS Safety Report 13342038 (Version 1)
Quarter: 2017Q1

REPORT INFORMATION
  Report Type: Spontaneous
  Country: US (occurrence: US)
  Receive Date: 20170316
  Receipt Date: 20170316
  Transmission Date: 20170428
  Serious: No
  Sender: FDA-Public Use
  Company Number: US-ROCHE-1751055

PATIENT
  Sex: Female

DRUGS (9)
  1. AZITHROMYCIN ANHYDROUS. [Concomitant]
     Active Substance: AZITHROMYCIN ANHYDROUS
     Indication: TOOTH ABSCESS
     Route: 048
  2. VITAMIN B1 [Concomitant]
     Active Substance: THIAMINE HYDROCHLORIDE
  3. AMLODIPINE [Concomitant]
     Active Substance: AMLODIPINE BESYLATE
     Indication: HYPERTENSION
     Route: 048
  4. SYNTHROID [Concomitant]
     Active Substance: LEVOTHYROXINE SODIUM
     Indication: HYPOTHYROIDISM
     Route: 048
  5. ERIVEDGE [Suspect]
     Active Substance: VISMODEGIB
     Indication: BASAL CELL CARCINOMA
     Route: 048
     Dates: start: 20160414
  6. NORCO [Concomitant]
     Active Substance: ACETAMINOPHEN\HYDROCODONE BITARTRATE
     Indication: TOOTH ABSCESS
     Route: 048
  7. ATENOLOL. [Concomitant]
     Active Substance: ATENOLOL
     Indication: HYPERTENSION
     Route: 048
  8. PRAVASTATIN. [Concomitant]
     Active Substance: PRAVASTATIN
  9. DIOVAN [Concomitant]
     Active Substance: VALSARTAN

REACTIONS (1)
  - Pruritus [Not Recovered/Not Resolved]
